FAERS Safety Report 8540396-2 (Version None)
Quarter: 2012Q3

REPORT INFORMATION
  Report Type: 
  Country: None (occurrence: None)
  Receive Date: 20120726
  Receipt Date: 20110921
  Transmission Date: 20120928
  Serious: No
  Sender: FDA-Public Use
  Company Number: US-ASTRAZENECA-2011SE19245

PATIENT
  Age: 43 Year
  Sex: Female
  Weight: 86.2 kg

DRUGS (4)
  1. SEROQUEL XR [Suspect]
     Route: 048
  2. BIRTH CONTROL PILL [Concomitant]
  3. SEROQUEL XR [Suspect]
     Indication: BIPOLAR DISORDER
     Route: 048
     Dates: start: 20040101
  4. SEROQUEL XR [Suspect]
     Route: 048

REACTIONS (5)
  - DRUG INTOLERANCE [None]
  - NASAL CONGESTION [None]
  - DYSPNOEA [None]
  - MALAISE [None]
  - WEIGHT INCREASED [None]
